FAERS Safety Report 12643592 (Version 2)
Quarter: 2016Q4

REPORT INFORMATION
  Report Type: Report from Study
  Country: BR (occurrence: BR)
  Receive Date: 20160811
  Receipt Date: 20161102
  Transmission Date: 20170207
  Serious: Yes (Hospitalization, Other)
  Sender: FDA-Public Use
  Company Number: PHHY2016BR061077

PATIENT
  Sex: Female
  Weight: 50 kg

DRUGS (5)
  1. ANGIOPRESS [Concomitant]
     Active Substance: CAPTOPRIL
     Indication: HYPERTENSION
     Dosage: 1 DF, QD
     Route: 048
  2. LORAX//LORAZEPAM [Concomitant]
     Active Substance: LORAZEPAM
     Indication: INSOMNIA
     Dosage: 1 DF, QD
     Route: 048
  3. AFINITOR [Suspect]
     Active Substance: EVEROLIMUS
     Indication: BREAST CANCER METASTATIC
     Dosage: 1 DF, QD
     Route: 048
     Dates: start: 20160423
  4. AROMASIN [Concomitant]
     Active Substance: EXEMESTANE
     Indication: BREAST CANCER
     Dosage: 1 DF, QD
     Route: 048
     Dates: start: 201604
  5. PURAN [Concomitant]
     Active Substance: LEVOTHYROXINE SODIUM
     Indication: THYROID DISORDER
     Dosage: 1 DF, QD
     Route: 048

REACTIONS (20)
  - General physical health deterioration [Unknown]
  - Decreased appetite [Unknown]
  - Rash [Unknown]
  - Noninfective gingivitis [Unknown]
  - Metastases to lung [Unknown]
  - Parkinson^s disease [Unknown]
  - Vitamin D deficiency [Unknown]
  - Malaise [Unknown]
  - Mental impairment [Unknown]
  - Insomnia [Unknown]
  - Urinary tract infection [Unknown]
  - Productive cough [Not Recovered/Not Resolved]
  - Dementia Alzheimer^s type [Unknown]
  - Eye swelling [Unknown]
  - Haemoptysis [Unknown]
  - Nausea [Unknown]
  - Weight decreased [Unknown]
  - Anaemia [Unknown]
  - Swelling [Unknown]
  - Metastases to bone [Unknown]
